FAERS Safety Report 10768775 (Version 1)
Quarter: 2015Q1

REPORT INFORMATION
  Report Type: Spontaneous
  Country: US (occurrence: US)
  Receive Date: 20150206
  Receipt Date: 20150206
  Transmission Date: 20150721
  Serious: No
  Sender: FDA-Public Use
  Company Number: US-PFIZER INC-2015035011

PATIENT

DRUGS (1)
  1. PROCARDIA XL [Suspect]
     Active Substance: NIFEDIPINE
     Indication: BLOOD PRESSURE
     Dosage: 30 MG, 2X/DAY (30 MG, AM AND PM)
     Dates: start: 201003

REACTIONS (2)
  - Intentional product misuse [Unknown]
  - Drug effect incomplete [Unknown]
